FAERS Safety Report 6639524-5 (Version None)
Quarter: 2010Q1

REPORT INFORMATION
  Report Type: 
  Country: None (occurrence: None)
  Receive Date: 20100318
  Receipt Date: 20100303
  Transmission Date: 20100710
  Serious: Yes (Disabling, Other)
  Sender: FDA-Public Use
  Company Number: US-ELI_LILLY_AND_COMPANY-US201003001529

PATIENT
  Sex: Male

DRUGS (6)
  1. CIALIS [Suspect]
     Indication: DIABETES MELLITUS
     Dosage: 20 MG, AS NEEDED
     Dates: start: 20070101
  2. PROTONIX /01263201/ [Concomitant]
  3. PROPANE [Concomitant]
  4. DURAGESIC-100 [Concomitant]
     Indication: PAIN
  5. NORCO [Concomitant]
  6. NEURONTIN [Concomitant]
     Dosage: 600 MG, EVERY 8 HRS

REACTIONS (4)
  - ARTHROPATHY [None]
  - BACK DISORDER [None]
  - OFF LABEL USE [None]
  - SURGERY [None]
